FAERS Safety Report 24732751 (Version 4)
Quarter: 2025Q3

REPORT INFORMATION
  Report Type: Spontaneous
  Country: US (occurrence: US)
  Receive Date: 20241213
  Receipt Date: 20250703
  Transmission Date: 20251020
  Serious: No
  Sender: PFIZER
  Company Number: US-PFIZER INC-202101243282

PATIENT
  Age: 81 Year
  Sex: Female
  Weight: 67.13 kg

DRUGS (8)
  1. XELJANZ XR [Suspect]
     Active Substance: TOFACITINIB CITRATE
     Indication: Rheumatoid arthritis
     Dosage: 11 MG, 1X/DAY, 90 DAYS, 90 TABLET
     Route: 048
     Dates: start: 20210712
  2. XELJANZ XR [Suspect]
     Active Substance: TOFACITINIB CITRATE
     Indication: Arthritis
  3. FOLIC ACID [Concomitant]
     Active Substance: FOLIC ACID
     Dates: start: 201106
  4. METHOTREXATE [Concomitant]
     Active Substance: METHOTREXATE
     Dates: start: 201102
  5. ESOMEPRAZOLE MAGNESIUM [Concomitant]
     Active Substance: ESOMEPRAZOLE MAGNESIUM
     Indication: Gastrointestinal disorder
     Dates: start: 202102
  6. LEVOTHYROXINE [Concomitant]
     Active Substance: LEVOTHYROXINE
     Indication: Thyroid disorder
     Dates: start: 201102
  7. BIOTIN [Concomitant]
     Active Substance: BIOTIN
     Indication: Nail disorder
  8. BIOTIN [Concomitant]
     Active Substance: BIOTIN
     Indication: Hair disorder

REACTIONS (2)
  - Pain [Unknown]
  - Gait disturbance [Unknown]
